FAERS Safety Report 18158198 (Version 3)
Quarter: 2021Q2

REPORT INFORMATION
  Report Type: Spontaneous
  Country: US (occurrence: US)
  Receive Date: 20200817
  Receipt Date: 20210510
  Transmission Date: 20210717
  Serious: Yes (Hospitalization, Other)
  Sender: FDA-Public Use
  Company Number: US-GILEAD-2020-0489363

PATIENT
  Age: 55 Year
  Sex: Female
  Weight: 75.28 kg

DRUGS (28)
  1. SUSTIVA [Concomitant]
     Active Substance: EFAVIRENZ
  2. VIREAD [Suspect]
     Active Substance: TENOFOVIR DISOPROXIL FUMARATE
     Indication: HIV INFECTION
     Dosage: UNK
     Route: 048
     Dates: start: 2003
  3. TOPROL XL [Concomitant]
     Active Substance: METOPROLOL SUCCINATE
  4. WELCHOL [Concomitant]
     Active Substance: COLESEVELAM HYDROCHLORIDE
  5. CRIXIVAN [Concomitant]
     Active Substance: INDINAVIR SULFATE
  6. ALLEGRA [Concomitant]
     Active Substance: FEXOFENADINE HYDROCHLORIDE
  7. CYCLOBENZAPRINE. [Concomitant]
     Active Substance: CYCLOBENZAPRINE
  8. PREMARIN [Concomitant]
     Active Substance: ESTROGENS, CONJUGATED
  9. FLEXERIL [Concomitant]
     Active Substance: CYCLOBENZAPRINE HYDROCHLORIDE
  10. LEVOFLOXACIN. [Concomitant]
     Active Substance: LEVOFLOXACIN
  11. PRILOSEC [Concomitant]
     Active Substance: OMEPRAZOLE MAGNESIUM
  12. ZIAGEN [Concomitant]
     Active Substance: ABACAVIR SULFATE
  13. ASPIRIN [ACETYLSALICYLIC ACID] [Concomitant]
     Active Substance: ASPIRIN
     Dosage: UNK
  14. ATIVAN [Concomitant]
     Active Substance: LORAZEPAM
  15. CYMBALTA [Concomitant]
     Active Substance: DULOXETINE HYDROCHLORIDE
  16. DEXILANT [Concomitant]
     Active Substance: DEXLANSOPRAZOLE
  17. MELATONIN [Concomitant]
     Active Substance: MELATONIN
  18. RANITIDINE. [Concomitant]
     Active Substance: RANITIDINE
  19. VIREAD [Suspect]
     Active Substance: TENOFOVIR DISOPROXIL FUMARATE
     Dosage: UNK
     Route: 048
     Dates: start: 20070816, end: 20131115
  20. KALETRA [Concomitant]
     Active Substance: LOPINAVIR\RITONAVIR
  21. ROPINIROLE. [Concomitant]
     Active Substance: ROPINIROLE
  22. COMBIVIR [Concomitant]
     Active Substance: LAMIVUDINE\ZIDOVUDINE
  23. VIDEX [Concomitant]
     Active Substance: DIDANOSINE
  24. FAMOTIDINE. [Concomitant]
     Active Substance: FAMOTIDINE
     Dosage: UNK
  25. ISENTRESS [Concomitant]
     Active Substance: RALTEGRAVIR POTASSIUM
  26. METOPROLOL. [Concomitant]
     Active Substance: METOPROLOL
     Dosage: UNK
  27. MIRAPEX [Concomitant]
     Active Substance: PRAMIPEXOLE DIHYDROCHLORIDE
  28. ONDANSETRON [Concomitant]
     Active Substance: ONDANSETRON

REACTIONS (17)
  - Acute kidney injury [Unknown]
  - Emotional distress [Unknown]
  - Pain [Unknown]
  - Hip fracture [Recovered/Resolved]
  - Acute kidney injury [Unknown]
  - Femur fracture [Recovered/Resolved]
  - Acute kidney injury [Unknown]
  - Gait disturbance [Not Recovered/Not Resolved]
  - Lower limb fracture [Recovered/Resolved]
  - Chronic kidney disease [Not Recovered/Not Resolved]
  - Hip fracture [Unknown]
  - Bone density decreased [Recovered/Resolved]
  - Femur fracture [Unknown]
  - Acute kidney injury [Unknown]
  - Lower limb fracture [Recovered/Resolved]
  - Osteoporosis [Not Recovered/Not Resolved]
  - Mental impairment [Unknown]

NARRATIVE: CASE EVENT DATE: 2012
